FAERS Safety Report 11039204 (Version 1)
Quarter: 2015Q2

REPORT INFORMATION
  Report Type: Spontaneous
  Country: SE (occurrence: SE)
  Receive Date: 20150416
  Receipt Date: 20150416
  Transmission Date: 20150821
  Serious: Yes (Life-Threatening)
  Sender: FDA-Public Use
  Company Number: SE-ASTRAZENECA-2015SE33211

PATIENT
  Age: 75 Year
  Sex: Male

DRUGS (11)
  1. METOPROLOL TARTRATE. [Suspect]
     Active Substance: METOPROLOL TARTRATE
     Indication: HYPERTENSION
     Route: 048
     Dates: start: 20050630, end: 20150318
  2. CRESTOR [Concomitant]
     Active Substance: ROSUVASTATIN CALCIUM
  3. ISMO RETARD [Concomitant]
  4. ESOMEPRAZOLE [Concomitant]
     Active Substance: ESOMEPRAZOLE
  5. LANTUS [Concomitant]
     Active Substance: INSULIN GLARGINE
  6. TROMBYL [Concomitant]
     Active Substance: ASPIRIN
  7. FELODIPINE. [Concomitant]
     Active Substance: FELODIPINE
  8. FUCIDIN [Concomitant]
     Active Substance: FUSIDIC ACID
  9. DICLOFENAC [Concomitant]
     Active Substance: DICLOFENAC
  10. ACTRAPID [Concomitant]
     Active Substance: INSULIN HUMAN
     Dosage: 100 IE/ML
  11. NITROLINGUAL [Concomitant]
     Active Substance: NITROGLYCERIN

REACTIONS (2)
  - Cardiac arrest [Recovered/Resolved]
  - Presyncope [Recovered/Resolved]

NARRATIVE: CASE EVENT DATE: 20150315
